FAERS Safety Report 16117733 (Version 15)
Quarter: 2019Q3

REPORT INFORMATION
  Report Type: Report from Study
  Country: CA (occurrence: CA)
  Receive Date: 20190326
  Receipt Date: 20190916
  Transmission Date: 20191004
  Serious: Yes (Other)
  Sender: FDA-Public Use
  Company Number: CA-ROCHE-2020935

PATIENT
  Age: 49 Year
  Sex: Female
  Weight: 54 kg

DRUGS (19)
  1. SULFASALAZINE. [Concomitant]
     Active Substance: SULFASALAZINE
     Indication: PRODUCT USED FOR UNKNOWN INDICATION
  2. AVASTIN [Suspect]
     Active Substance: BEVACIZUMAB
     Indication: OVARIAN CANCER RECURRENT
     Route: 042
     Dates: start: 20170223, end: 20170629
  3. DEXAMETHASONE SODIUM PHOSPHATE. [Concomitant]
     Active Substance: DEXAMETHASONE SODIUM PHOSPHATE
     Indication: NAUSEA
     Route: 065
     Dates: start: 20170202
  4. HYDROXYCHLOROQUINE [Concomitant]
     Active Substance: HYDROXYCHLOROQUINE
     Indication: PRODUCT USED FOR UNKNOWN INDICATION
     Route: 065
  5. NOVAMOXIN [Concomitant]
     Active Substance: AMOXICILLIN
     Route: 065
     Dates: start: 20170202
  6. CEFPROZIL. [Concomitant]
     Active Substance: CEFPROZIL
     Dosage: FOR 10 DAYS
     Route: 065
     Dates: start: 20170306
  7. AVASTIN [Suspect]
     Active Substance: BEVACIZUMAB
     Route: 042
     Dates: start: 20170720, end: 20171013
  8. AVASTIN [Suspect]
     Active Substance: BEVACIZUMAB
     Route: 042
  9. AVASTIN [Suspect]
     Active Substance: BEVACIZUMAB
     Route: 042
     Dates: start: 20190418
  10. PANTOPRAZOLE [Concomitant]
     Active Substance: PANTOPRAZOLE
     Route: 065
     Dates: start: 20170202
  11. AVASTIN [Suspect]
     Active Substance: BEVACIZUMAB
     Route: 042
     Dates: start: 20180406, end: 20190329
  12. AMITRIPTYLINE [Concomitant]
     Active Substance: AMITRIPTYLINE
     Indication: PRODUCT USED FOR UNKNOWN INDICATION
     Route: 065
  13. PROCHLORAZINE [Concomitant]
     Indication: NAUSEA
     Route: 065
     Dates: start: 20170202
  14. AVASTIN [Suspect]
     Active Substance: BEVACIZUMAB
     Route: 042
     Dates: start: 20171103, end: 20180316
  15. AVASTIN [Suspect]
     Active Substance: BEVACIZUMAB
     Dosage: DATE OF PREVIOUS BEVACIZUMAB INFUSION 08/JUN/2018, ?SUBSEQUENT DOSE ON 20/JUL/2017 AND 06/APR/2018
     Route: 042
     Dates: start: 20180427
  16. AVASTIN [Suspect]
     Active Substance: BEVACIZUMAB
     Route: 042
     Dates: start: 20180608
  17. AVASTIN [Suspect]
     Active Substance: BEVACIZUMAB
     Route: 042
     Dates: start: 201903
  18. NORVASC [Concomitant]
     Active Substance: AMLODIPINE BESYLATE
     Indication: HYPERTENSION
     Dosage: LOW DOSE
     Route: 065
     Dates: start: 20170202
  19. EMEND [Concomitant]
     Active Substance: APREPITANT
     Indication: NAUSEA
     Dosage: LOW DOSE
     Route: 065
     Dates: start: 20170202

REACTIONS (28)
  - Throat irritation [Recovered/Resolved]
  - Fatigue [Unknown]
  - Arthritis [Not Recovered/Not Resolved]
  - Pyelocaliectasis [Unknown]
  - Hyponatraemia [Not Recovered/Not Resolved]
  - Bone disorder [Unknown]
  - Blood sodium decreased [Recovered/Resolved]
  - Blood pressure increased [Unknown]
  - Oropharyngeal pain [Recovering/Resolving]
  - Weight decreased [Unknown]
  - Bronchial secretion retention [Unknown]
  - Ovarian cancer recurrent [Unknown]
  - Headache [Recovered/Resolved]
  - Pain [Recovered/Resolved]
  - Arteriosclerosis [Unknown]
  - Myalgia [Recovered/Resolved]
  - Chills [Recovered/Resolved]
  - Pain in jaw [Unknown]
  - Protein urine present [Unknown]
  - Pyrexia [Recovered/Resolved]
  - Dysuria [Unknown]
  - Epigastric discomfort [Recovered/Resolved]
  - Musculoskeletal pain [Recovered/Resolved]
  - Arthralgia [Unknown]
  - Pulmonary fibrosis [Unknown]
  - Ear pain [Not Recovered/Not Resolved]
  - Hypertension [Unknown]
  - Protein total increased [Unknown]

NARRATIVE: CASE EVENT DATE: 2018
